FAERS Safety Report 25323530 (Version 2)
Quarter: 2025Q3

REPORT INFORMATION
  Report Type: Spontaneous
  Country: BR (occurrence: BR)
  Receive Date: 20250516
  Receipt Date: 20250703
  Transmission Date: 20251020
  Serious: Yes (Hospitalization, Other)
  Sender: SANOFI AVENTIS
  Company Number: BR-SANOFI-02509883

PATIENT
  Age: 21 Year
  Sex: Female
  Weight: 77 kg

DRUGS (10)
  1. ENOXAPARIN SODIUM [Suspect]
     Active Substance: ENOXAPARIN SODIUM
     Dosage: 40 MG, QD
     Route: 058
     Dates: start: 20250423
  2. PIPERACILLIN SODIUM\TAZOBACTAM SODIUM [Concomitant]
     Active Substance: PIPERACILLIN SODIUM\TAZOBACTAM SODIUM
     Dosage: UNK UNK, Q6H
     Route: 042
  3. METAMIZOLE [Concomitant]
     Active Substance: METAMIZOLE
     Dosage: 2 DF, Q6H (2VIALS Q6H)
     Route: 042
  4. METHYLPREDNISOLONE [Concomitant]
     Active Substance: METHYLPREDNISOLONE
     Dosage: 40 MG QD
     Route: 042
  5. METICORTEN [Concomitant]
     Active Substance: PREDNISONE
     Route: 048
  6. PANTOPRAZOLE SODIUM [Concomitant]
     Active Substance: PANTOPRAZOLE SODIUM
     Route: 042
  7. PANTOZOL [Concomitant]
     Active Substance: PANTOPRAZOLE SODIUM
     Route: 048
  8. MAGNE B6 [Concomitant]
     Active Substance: MAGNESIUM\PYRIDOXINE
     Route: 048
  9. FLORATIL [SACCHAROMYCES BOULARDII] [Concomitant]
     Dosage: UNK UNK, Q12H
     Route: 048
  10. FLUCISTEIN [Concomitant]
     Dosage: UNK UNK, Q8H
     Route: 048

REACTIONS (10)
  - Deep vein thrombosis [Recovering/Resolving]
  - Axillary vein thrombosis [Recovering/Resolving]
  - Subclavian vein thrombosis [Recovering/Resolving]
  - Brachiocephalic vein thrombosis [Recovering/Resolving]
  - Superficial vein thrombosis [Recovering/Resolving]
  - Paraesthesia [Recovering/Resolving]
  - Oedema [Recovering/Resolving]
  - Cyanosis [Recovering/Resolving]
  - Skin fragility [Recovering/Resolving]
  - Drug ineffective [Recovering/Resolving]

NARRATIVE: CASE EVENT DATE: 20250429
